FAERS Safety Report 16120233 (Version 2)
Quarter: 2019Q3

REPORT INFORMATION
  Report Type: Spontaneous
  Country: US (occurrence: US)
  Receive Date: 20190326
  Receipt Date: 20190826
  Transmission Date: 20191004
  Serious: Yes (Other)
  Sender: FDA-Public Use
  Company Number: US-SHIRE-US201909850

PATIENT
  Age: 83 Year
  Sex: Male

DRUGS (1)
  1. GATTEX [Suspect]
     Active Substance: TEDUGLUTIDE\WATER
     Indication: SHORT-BOWEL SYNDROME
     Dosage: 0.385 UNIT UNKNOWN
     Route: 058
     Dates: start: 20190814

REACTIONS (4)
  - Dehydration [Not Recovered/Not Resolved]
  - Atrial fibrillation [Unknown]
  - Renal impairment [Unknown]
  - Product dose omission [Unknown]

NARRATIVE: CASE EVENT DATE: 20190314
